FAERS Safety Report 15989051 (Version 4)
Quarter: 2019Q1

REPORT INFORMATION
  Report Type: Spontaneous
  Country: FR (occurrence: FR)
  Receive Date: 20190221
  Receipt Date: 20190325
  Transmission Date: 20190418
  Serious: Yes (Death, Other)
  Sender: FDA-Public Use
  Company Number: FR-B.I. PHARMACEUTICALS,INC./RIDGEFIELD-2019-12-000579

PATIENT
  Age: 92 Year
  Sex: Male
  Weight: 88.7 kg

DRUGS (10)
  1. CEFTRIAXONE SODIUM. [Suspect]
     Active Substance: CEFTRIAXONE SODIUM
     Indication: LUNG INFECTION
     Dosage: FORM OF ADMIN.: POWDER FOR SOLUTION FOR INJECTION
     Route: 042
     Dates: start: 20190126, end: 20190201
  2. FEBUXOSTAT. [Suspect]
     Active Substance: FEBUXOSTAT
     Indication: GOUT
     Route: 048
     Dates: start: 20190201, end: 20190201
  3. VENOFER [Suspect]
     Active Substance: IRON SUCROSE
     Indication: ANAEMIA
     Dosage: FORM OF ADMIN: SOLUTION FOR INJECTION
     Route: 042
     Dates: start: 20190131, end: 20190131
  4. ATROVENT [Suspect]
     Active Substance: IPRATROPIUM BROMIDE
     Indication: CHRONIC OBSTRUCTIVE PULMONARY DISEASE
     Route: 050
     Dates: start: 20190201, end: 20190201
  5. ROVAMYCINE [Suspect]
     Active Substance: SPIRAMYCIN
     Indication: LUNG INFECTION
     Dosage: 1.5 MIU
     Route: 048
     Dates: start: 20190130, end: 20190201
  6. RAMIPRIL MYLAN [Suspect]
     Active Substance: RAMIPRIL
     Route: 048
  7. PREVISCAN (FLUINDIONE) [Suspect]
     Active Substance: FLUINDIONE
     Indication: ATRIAL FIBRILLATION
     Route: 048
     Dates: start: 20190131, end: 20190131
  8. RAMIPRIL MYLAN [Suspect]
     Active Substance: RAMIPRIL
     Indication: HYPERTENSION
     Route: 048
     Dates: end: 20190201
  9. BRICANYL [Suspect]
     Active Substance: TERBUTALINE SULFATE
     Indication: CHRONIC OBSTRUCTIVE PULMONARY DISEASE
     Route: 050
     Dates: start: 20190201, end: 20190201
  10. VERAPAMIL HYDROCHLORIDE. [Suspect]
     Active Substance: VERAPAMIL HYDROCHLORIDE
     Indication: HYPERTENSION
     Route: 048
     Dates: start: 20190201, end: 20190201

REACTIONS (3)
  - Prothrombin time ratio decreased [None]
  - International normalised ratio abnormal [None]
  - Cerebral haematoma [Fatal]

NARRATIVE: CASE EVENT DATE: 20190201
